FAERS Safety Report 4449438-7 (Version None)
Quarter: 2004Q3

REPORT INFORMATION
  Report Type: 
  Country: None (occurrence: None)
  Receive Date: 20040913
  Receipt Date: 20040304
  Transmission Date: 20050211
  Serious: Yes (Hospitalization)
  Sender: FDA-Public Use
  Company Number: 2004PK00457

PATIENT
  Age: 71 Year
  Sex: Female

DRUGS (6)
  1. NEXIUM [Suspect]
     Dosage: 20 MG DAILY PO
     Route: 048
     Dates: start: 20031120
  2. SINQUAN [Suspect]
     Dosage: 50 MG DAILY PO
     Route: 048
     Dates: start: 19920101, end: 20031124
  3. DER0XAT [Suspect]
     Dosage: 10 MG DAILY PO
     Route: 048
     Dates: start: 20031119
  4. TENORMIN [Concomitant]
  5. NORVASC [Concomitant]
  6. COZAAR [Concomitant]

REACTIONS (7)
  - BLOOD PRESSURE FLUCTUATION [None]
  - CONSTIPATION [None]
  - DRUG INTERACTION [None]
  - FAECALOMA [None]
  - FLATULENCE [None]
  - GENERAL PHYSICAL HEALTH DETERIORATION [None]
  - INFLAMMATION [None]
